FAERS Safety Report 6140423-6 (Version None)
Quarter: 2009Q2

REPORT INFORMATION
  Report Type: 
  Country: None (occurrence: None)
  Receive Date: 20090401
  Receipt Date: 20090323
  Transmission Date: 20091009
  Serious: Yes (Death, Hospitalization)
  Sender: FDA-Public Use
  Company Number: BE-AMGEN-US339951

PATIENT
  Age: 76 Year
  Sex: Male
  Weight: 94 kg

DRUGS (3)
  1. ENBREL [Suspect]
     Indication: PSORIASIS
     Route: 058
     Dates: start: 20070301, end: 20070917
  2. THEOPHYLLINE [Concomitant]
  3. SERENOA REPENS [Concomitant]

REACTIONS (1)
  - COLON CANCER [None]
